FAERS Safety Report 19695419 (Version 2)
Quarter: 2021Q3

REPORT INFORMATION
  Report Type: Spontaneous
  Country: DE (occurrence: DE)
  Receive Date: 20210813
  Receipt Date: 20210820
  Transmission Date: 20211014
  Serious: Yes (Life-Threatening, Hospitalization)
  Sender: FDA-Public Use
  Company Number: DE-SUN PHARMACEUTICAL INDUSTRIES LTD-2021RR-307746

PATIENT
  Sex: Male
  Weight: 110 kg

DRUGS (1)
  1. OLANZAPIN BASICS 10 MG TABLETTEN [Suspect]
     Active Substance: OLANZAPINE
     Indication: BIPOLAR DISORDER
     Dosage: 10 MILLIGRAM, DAILY
     Route: 048
     Dates: start: 20210726, end: 20210727

REACTIONS (5)
  - Dyspnoea [Not Recovered/Not Resolved]
  - Drug hypersensitivity [Not Recovered/Not Resolved]
  - Product substitution issue [Unknown]
  - Angioedema [Not Recovered/Not Resolved]
  - Oedema peripheral [Not Recovered/Not Resolved]
